FAERS Safety Report 23653392 (Version 1)
Quarter: 2024Q1

REPORT INFORMATION
  Report Type: Report from Study
  Country: ZA (occurrence: ZA)
  Receive Date: 20240320
  Receipt Date: 20240320
  Transmission Date: 20240409
  Serious: Yes (Other)
  Sender: FDA-Public Use
  Company Number: ZA-002147023-NVSC2024ZA018734

PATIENT
  Age: 48 Year
  Sex: Female

DRUGS (5)
  1. SIPONIMOD [Suspect]
     Active Substance: SIPONIMOD
     Indication: Secondary progressive multiple sclerosis
     Dosage: 0.25 MG, QD (PT HAD JUST INITIATED TITRATION SCHEDULE)
     Route: 048
     Dates: start: 20240125
  2. SIPONIMOD [Suspect]
     Active Substance: SIPONIMOD
     Dosage: 5 MG, QD (2 TABLETS OF 0.25 MG)
     Route: 048
  3. SIPONIMOD [Suspect]
     Active Substance: SIPONIMOD
     Dosage: 0.75 MG, QD
     Route: 048
  4. SIPONIMOD [Suspect]
     Active Substance: SIPONIMOD
     Dosage: 2 MG, QOD
     Route: 048
  5. SIPONIMOD [Suspect]
     Active Substance: SIPONIMOD
     Dosage: 2 MG, QD
     Route: 048
     Dates: start: 20240125

REACTIONS (7)
  - Fatigue [Unknown]
  - Dizziness [Unknown]
  - Pollakiuria [Unknown]
  - Gait disturbance [Unknown]
  - Musculoskeletal stiffness [Unknown]
  - Asthenia [Unknown]
  - Off label use [Unknown]
